FAERS Safety Report 24409551 (Version 3)
Quarter: 2024Q4

REPORT INFORMATION
  Report Type: Report from Study
  Country: US (occurrence: US)
  Receive Date: 20241008
  Receipt Date: 20241127
  Transmission Date: 20250114
  Serious: No
  Sender: ACADIA PHARMACEUTICALS
  Company Number: US-ACADIA PHARMACEUTICALS INC.-ACA-2024-PIM-005994

PATIENT
  Sex: Male

DRUGS (17)
  1. NUPLAZID [Suspect]
     Active Substance: PIMAVANSERIN TARTRATE
     Indication: Parkinson^s disease psychosis
     Dosage: 34 MILLIGRAM, QD
     Route: 048
     Dates: start: 202409
  2. TYLENOL [Concomitant]
     Active Substance: ACETAMINOPHEN
  3. SINEMET [Concomitant]
     Active Substance: CARBIDOPA\LEVODOPA
  4. SINEMET CR [Concomitant]
     Active Substance: CARBIDOPA\LEVODOPA
  5. CELECOXIB [Concomitant]
     Active Substance: CELECOXIB
  6. CLONAZEPAM [Concomitant]
     Active Substance: CLONAZEPAM
  7. DONEPEZIL [Concomitant]
     Active Substance: DONEPEZIL
  8. DOCUSATE [Concomitant]
     Active Substance: DOCUSATE
  9. ENTACAPONE [Concomitant]
     Active Substance: ENTACAPONE
  10. ALUMINUM HYDROXIDE\MAGNESIUM CARBONATE [Concomitant]
     Active Substance: ALUMINUM HYDROXIDE\MAGNESIUM CARBONATE
  11. LIDOCAINE [Concomitant]
     Active Substance: LIDOCAINE
  12. MELOXICAM [Concomitant]
     Active Substance: MELOXICAM
  13. METFORMIN [Concomitant]
     Active Substance: METFORMIN HYDROCHLORIDE
  14. MIRALAX [Concomitant]
     Active Substance: POLYETHYLENE GLYCOL 3350
  15. REQUIP XL [Concomitant]
     Active Substance: ROPINIROLE HYDROCHLORIDE
  16. SENOKOT [Concomitant]
     Active Substance: SENNOSIDES
  17. TIZANIDINE [Concomitant]
     Active Substance: TIZANIDINE

REACTIONS (1)
  - No adverse event [Unknown]
